FAERS Safety Report 25907040 (Version 1)
Quarter: 2025Q4

REPORT INFORMATION
  Report Type: Spontaneous
  Country: US (occurrence: US)
  Receive Date: 20251010
  Receipt Date: 20251010
  Transmission Date: 20260117
  Serious: No
  Sender: HARMONY BIOSCIENCES
  Company Number: US-HARMONY BIOSCIENCES-2025HMY00630

PATIENT

DRUGS (4)
  1. WAKIX [Suspect]
     Active Substance: PITOLISANT HYDROCHLORIDE
     Indication: Narcolepsy
     Dosage: TITRATED UP
     Route: 048
     Dates: start: 202412, end: 202503
  2. WAKIX [Suspect]
     Active Substance: PITOLISANT HYDROCHLORIDE
     Dosage: 17.8 MG, 1X/DAY
     Route: 048
     Dates: start: 202503, end: 202503
  3. MODAFINIL [Concomitant]
     Active Substance: MODAFINIL
     Dosage: UNK
     Route: 065
  4. XYWAV [Concomitant]
     Active Substance: CALCIUM OXYBATE\MAGNESIUM OXYBATE\POTASSIUM OXYBATE\SODIUM OXYBATE
     Dosage: UNK
     Route: 065

REACTIONS (2)
  - Increased appetite [Unknown]
  - Weight increased [Unknown]

NARRATIVE: CASE EVENT DATE: 20250301
